FAERS Safety Report 9397553 (Version 1)
Quarter: 2013Q3

REPORT INFORMATION
  Report Type: Spontaneous
  Country: US (occurrence: None)
  Receive Date: 20130711
  Receipt Date: 20130711
  Transmission Date: 20140515
  Serious: No
  Sender: FDA-Public Use
  Company Number: None

PATIENT
  Age: 5 Year
  Sex: Male
  Weight: 26.31 kg

DRUGS (1)
  1. SINGULAIR [Suspect]
     Route: 048
     Dates: start: 20130625, end: 20130709

REACTIONS (5)
  - Rash erythematous [None]
  - Nightmare [None]
  - Sleep terror [None]
  - Aggression [None]
  - Anger [None]
